FAERS Safety Report 4542553-9 (Version None)
Quarter: 2004Q4

REPORT INFORMATION
  Report Type: 
  Country: None (occurrence: None)
  Receive Date: 20041230
  Receipt Date: 20041222
  Transmission Date: 20050328
  Serious: Yes (Other)
  Sender: FDA-Public Use
  Company Number: US-MERCK-0412USA02767

PATIENT
  Age: 5 Year
  Sex: Male

DRUGS (1)
  1. PERIACTIN [Suspect]
     Route: 048

REACTIONS (1)
  - CEREBROSPINAL FLUID LEAKAGE [None]
